FAERS Safety Report 19761667 (Version 1)
Quarter: 2021Q3

REPORT INFORMATION
  Report Type: Spontaneous
  Country: US (occurrence: US)
  Receive Date: 20210828
  Receipt Date: 20210828
  Transmission Date: 20211014
  Serious: Yes (Life-Threatening, Hospitalization)
  Sender: FDA-Public Use
  Company Number: None

PATIENT
  Age: 55 Year
  Sex: Male
  Weight: 106.65 kg

DRUGS (5)
  1. JARDIANCE [Concomitant]
     Active Substance: EMPAGLIFLOZIN
  2. WEGOVY [Suspect]
     Active Substance: SEMAGLUTIDE
     Indication: OBESITY
     Dosage: ?          OTHER FREQUENCY:WEEKLY;OTHER ROUTE:INJECTION?
     Dates: start: 20210711, end: 20210716
  3. ATORVASTATIN [Concomitant]
     Active Substance: ATORVASTATIN
  4. ASPIRIN. [Concomitant]
     Active Substance: ASPIRIN
  5. LISINOPRIL. [Concomitant]
     Active Substance: LISINOPRIL

REACTIONS (4)
  - Vomiting [None]
  - Renal impairment [None]
  - Dehydration [None]
  - Ketoacidosis [None]

NARRATIVE: CASE EVENT DATE: 20210716
